FAERS Safety Report 21558204 (Version 1)
Quarter: 2022Q4

REPORT INFORMATION
  Report Type: Report from Study
  Country: EG (occurrence: EG)
  Receive Date: 20221107
  Receipt Date: 20221107
  Transmission Date: 20230112
  Serious: Yes (Other)
  Sender: FDA-Public Use
  Company Number: EG-002147023-NVSC2022EG191333

PATIENT
  Age: 29 Year
  Sex: Female

DRUGS (2)
  1. GILENYA [Suspect]
     Active Substance: FINGOLIMOD HYDROCHLORIDE
     Indication: Multiple sclerosis
     Dosage: 1 DOSAGE FORM, QD
     Route: 048
     Dates: start: 20220817, end: 20220817
  2. GILENYA [Suspect]
     Active Substance: FINGOLIMOD HYDROCHLORIDE
     Dosage: 1 DOSAGE FORM, QD (STOPPED 15 DAYS AGO)
     Route: 048
     Dates: start: 20220823

REACTIONS (5)
  - Loss of consciousness [Not Recovered/Not Resolved]
  - Seizure [Recovered/Resolved]
  - Seizure [Not Recovered/Not Resolved]
  - Psoriasis [Not Recovered/Not Resolved]
  - Fatigue [Recovered/Resolved]

NARRATIVE: CASE EVENT DATE: 20220817
